FAERS Safety Report 19847894 (Version 1)
Quarter: 2021Q3

REPORT INFORMATION
  Report Type: Spontaneous
  Country: CZ (occurrence: CZ)
  Receive Date: 20210917
  Receipt Date: 20210917
  Transmission Date: 20211014
  Serious: Yes (Other)
  Sender: FDA-Public Use
  Company Number: CZ-TEVA-2021-CZ-1954024

PATIENT
  Sex: Female

DRUGS (3)
  1. GOSERELIN [Suspect]
     Active Substance: GOSERELIN
     Indication: BREAST CANCER METASTATIC
     Dosage: 3.6 MG SUBCUTANEOUSLY ONCE A MONTH
     Route: 058
     Dates: start: 201907
  2. LETROZOLE. [Suspect]
     Active Substance: LETROZOLE
     Indication: BREAST CANCER METASTATIC
     Dosage: 2.5 MILLIGRAM DAILY; 2.5 MG DAILY
     Route: 065
     Dates: start: 201907
  3. RIBOCICLIB. [Suspect]
     Active Substance: RIBOCICLIB
     Indication: BREAST CANCER METASTATIC
     Dosage: 600 MILLIGRAM DAILY; 600 MG DAILY IN THE REGIMEN 3/1
     Route: 065
     Dates: start: 201907

REACTIONS (2)
  - Leukopenia [Unknown]
  - Neutropenia [Unknown]
